FAERS Safety Report 6666680-5 (Version None)
Quarter: 2010Q2

REPORT INFORMATION
  Report Type: 
  Country: None (occurrence: None)
  Receive Date: 20100405
  Receipt Date: 20100324
  Transmission Date: 20101027
  Serious: No
  Sender: FDA-Public Use
  Company Number: 2008BI028329

PATIENT
  Age: 49 Year
  Sex: Female

DRUGS (8)
  1. TYSABRI [Suspect]
     Indication: MULTIPLE SCLEROSIS
     Route: 042
     Dates: start: 20081016
  2. TYLENOL-500 [Concomitant]
     Indication: PREMEDICATION
     Dates: start: 20081016
  3. BENADRYL [Concomitant]
     Indication: PREMEDICATION
     Dates: start: 20081016
  4. TOPAMAX [Concomitant]
     Indication: HEADACHE
  5. MORPHINE [Concomitant]
     Indication: HEADACHE
  6. MECLIZINE [Concomitant]
     Indication: HEADACHE
  7. VERAPAMIL [Concomitant]
     Indication: HEADACHE
  8. ADVIL [Concomitant]
     Indication: HEADACHE

REACTIONS (5)
  - BACK PAIN [None]
  - GAIT DISTURBANCE [None]
  - HEADACHE [None]
  - POLLAKIURIA [None]
  - STRESS [None]
